FAERS Safety Report 22168983 (Version 3)
Quarter: 2024Q3

REPORT INFORMATION
  Report Type: Report from Study
  Country: JP (occurrence: JP)
  Receive Date: 20230404
  Receipt Date: 20240730
  Transmission Date: 20241017
  Serious: Yes (Disabling, Other)
  Sender: ABBVIE
  Company Number: JP-TAKEDA-2021TJP080159

PATIENT
  Age: 61 Year
  Sex: Male
  Weight: 77 kg

DRUGS (10)
  1. LEUPROLIDE ACETATE [Suspect]
     Active Substance: ISOPROPYL ALCOHOL\LEUPROLIDE ACETATE
     Indication: Bulbospinal muscular atrophy congenital
     Dosage: 11.25 MILLIGRAM, Q3MONTHS
     Route: 058
     Dates: start: 20180605
  2. ROSUVASTATIN CALCIUM [Concomitant]
     Active Substance: ROSUVASTATIN CALCIUM
     Indication: Product used for unknown indication
     Dosage: 2.5 MILLIGRAM
     Route: 065
  3. EZETIMIBE\ROSUVASTATIN [Concomitant]
     Active Substance: EZETIMIBE\ROSUVASTATIN
     Indication: Product used for unknown indication
     Dosage: 1 DOSAGE FORM
     Route: 065
  4. EPALRESTAT [Concomitant]
     Active Substance: EPALRESTAT
     Indication: Diabetic neuropathy
     Dosage: 150 MILLIGRAM
     Route: 065
  5. METHYLCOBALAMIN [Concomitant]
     Active Substance: METHYLCOBALAMIN
     Indication: Diabetic neuropathy
     Dosage: 1500 MICROGRAM
     Route: 065
  6. TOCOPHERYL NICOTINATE, D-.ALPHA. [Concomitant]
     Active Substance: TOCOPHERYL NICOTINATE, D-.ALPHA.
     Indication: Product used for unknown indication
     Dosage: 600 MILLIGRAM
     Route: 065
  7. METFORMIN HYDROCHLORIDE\VILDAGLIPTIN [Concomitant]
     Active Substance: METFORMIN HYDROCHLORIDE\VILDAGLIPTIN
     Indication: Product used for unknown indication
     Dosage: 2 DOSAGE FORM
     Route: 065
  8. METGLUCO [Concomitant]
     Active Substance: METFORMIN HYDROCHLORIDE
     Indication: Product used for unknown indication
     Dosage: 500 MILLIGRAM
     Route: 065
  9. GLIMEPIRIDE [Concomitant]
     Active Substance: GLIMEPIRIDE
     Indication: Product used for unknown indication
     Dosage: 0.5 MILLIGRAM
     Route: 065
  10. PIOGLITAZONE [Concomitant]
     Active Substance: PIOGLITAZONE
     Indication: Product used for unknown indication
     Dosage: 15 MILLIGRAM
     Route: 065

REACTIONS (2)
  - Diabetes mellitus [Recovering/Resolving]
  - Hypercholesterolaemia [Recovering/Resolving]

NARRATIVE: CASE EVENT DATE: 20190716
